FAERS Safety Report 18256154 (Version 1)
Quarter: 2020Q3

REPORT INFORMATION
  Report Type: Spontaneous
  Country: AU (occurrence: AU)
  Receive Date: 20200911
  Receipt Date: 20200911
  Transmission Date: 20201103
  Serious: Yes (Other)
  Sender: FDA-Public Use
  Company Number: AU-SA-2020SA064652

PATIENT

DRUGS (5)
  1. PHENERGAN [Suspect]
     Active Substance: PROMETHAZINE HYDROCHLORIDE
     Indication: ARTHROPOD BITE
     Dosage: 20 MG, BID
     Route: 065
  2. NORDIP [Concomitant]
     Active Substance: AMLODIPINE BESYLATE
     Dosage: UNK
  3. PHENERGAN [Suspect]
     Active Substance: PROMETHAZINE HYDROCHLORIDE
     Dosage: 1 DF
     Route: 065
  4. PIAX [Concomitant]
     Active Substance: CLOPIDOGREL BISULFATE
     Dosage: UNK
  5. FEXOFENADINE [Suspect]
     Active Substance: FEXOFENADINE HYDROCHLORIDE
     Indication: ARTHROPOD BITE
     Dosage: 1 DF MORNING
     Route: 065

REACTIONS (4)
  - Feeling abnormal [Recovered/Resolved]
  - Balance disorder [Recovered/Resolved]
  - Intentional product use issue [Unknown]
  - Loss of consciousness [Recovered/Resolved]
